FAERS Safety Report 4839221-2 (Version None)
Quarter: 2005Q4

REPORT INFORMATION
  Report Type: 
  Country: None (occurrence: None)
  Receive Date: 20051129
  Receipt Date: 20000225
  Transmission Date: 20060501
  Serious: No
  Sender: FDA-Public Use
  Company Number: US-GLAXOSMITHKLINE-A0113639A

PATIENT
  Age: 53 Year
  Sex: Male
  Weight: 99.1 kg

DRUGS (2)
  1. WELLBUTRIN SR [Suspect]
     Indication: DEPRESSION
     Dosage: 150MG SEE DOSAGE TEXT
     Route: 048
     Dates: start: 20000215
  2. CARDURA [Concomitant]
     Indication: HYPERTENSION
     Dosage: 4MG AT NIGHT
     Route: 048
     Dates: start: 19900101

REACTIONS (3)
  - CERUMEN IMPACTION [None]
  - DEAFNESS [None]
  - TINNITUS [None]
